FAERS Safety Report 6819054-8 (Version None)
Quarter: 2010Q3

REPORT INFORMATION
  Report Type: 
  Country: None (occurrence: None)
  Receive Date: 20100707
  Receipt Date: 20100628
  Transmission Date: 20110219
  Serious: No
  Sender: FDA-Public Use
  Company Number: US-JNJFOC-20100608312

PATIENT
  Sex: Female
  Weight: 75.75 kg

DRUGS (5)
  1. FENTANYL [Suspect]
     Indication: BACK DISORDER
     Route: 062
  2. FENTANYL [Suspect]
     Route: 062
  3. RELAFEN [Concomitant]
     Indication: ARTHRITIS
     Route: 048
  4. FLEXERIL [Concomitant]
     Indication: MUSCLE RELAXANT THERAPY
     Route: 048
  5. CALCIUM CARBONATE [Concomitant]
     Indication: MINERAL SUPPLEMENTATION
     Route: 048

REACTIONS (2)
  - PRODUCT ADHESION ISSUE [None]
  - WRONG TECHNIQUE IN DRUG USAGE PROCESS [None]
